FAERS Safety Report 7951354-0 (Version None)
Quarter: 2011Q4

REPORT INFORMATION
  Report Type: 
  Country: None (occurrence: None)
  Receive Date: 20111129
  Receipt Date: 20111115
  Transmission Date: 20120403
  Serious: Yes (Death, Congenital Anomaly)
  Sender: FDA-Public Use
  Company Number: 1000025715

PATIENT

DRUGS (6)
  1. VITAMIN (VITAMIN NOS) (VITAMIN NOS) [Concomitant]
  2. ESCITALOPRAM OXALATE [Suspect]
     Dosage: 10 MG (10 MG, 1 IN 1 D), TRANSPLACENTAL
     Route: 064
     Dates: start: 20030217, end: 20030310
  3. GRAVITAMIN (FOLIC ACID, VITAMINS) (FOLIC ACID, VITAMINS) [Concomitant]
  4. KENACUTAN (HALQUINOL, TRIAMCINOLONE ACETONIDE) (HALQUINOL, TRIAMCINOLO [Concomitant]
  5. PANODIL (PARACETAMOL)  (PARACETAMOL) [Concomitant]
  6. HAEMOGLOBIN IRON (IRON) (IRON) [Concomitant]

REACTIONS (3)
  - ABORTION INDUCED [None]
  - ANENCEPHALY [None]
  - MATERNAL DRUGS AFFECTING FOETUS [None]
